FAERS Safety Report 9269366 (Version 1)
Quarter: 2013Q2

REPORT INFORMATION
  Report Type: Report from Study
  Country: CA (occurrence: CA)
  Receive Date: 20130503
  Receipt Date: 20130503
  Transmission Date: 20140414
  Serious: Yes (Hospitalization)
  Sender: FDA-Public Use
  Company Number: PHHY2013CA042970

PATIENT
  Age: 78 Year
  Sex: Female

DRUGS (4)
  1. ACLASTA [Suspect]
     Indication: OSTEOPOROSIS
     Dosage: UNK UKN, UNK
     Route: 042
     Dates: start: 20090611
  2. ACLASTA [Suspect]
     Dosage: UNK UKN, UNK
     Route: 042
     Dates: start: 20100614
  3. ACLASTA [Suspect]
     Dosage: UNK UKN, UNK
     Route: 042
     Dates: start: 20110614
  4. ACLASTA [Suspect]
     Dosage: UNK UKN, UNK
     Route: 042
     Dates: start: 20120614

REACTIONS (4)
  - Urinary tract infection [Unknown]
  - Choking sensation [Unknown]
  - Oedema mouth [Unknown]
  - Dry mouth [Unknown]
